FAERS Safety Report 5919124-2 (Version None)
Quarter: 2008Q3

REPORT INFORMATION
  Report Type: 
  Country: None (occurrence: None)
  Receive Date: 20080909
  Receipt Date: 20070119
  Transmission Date: 20090109
  Serious: Yes (Hospitalization)
  Sender: FDA-Public Use
  Company Number: 163-20785-07011063

PATIENT
  Age: 67 Year
  Sex: Female

DRUGS (7)
  1. THALOMID [Suspect]
     Indication: MULTIPLE MYELOMA
     Dosage: 50 MG, QD (INTERIM PHASE), ORAL ; DOSES VARIED, ORAL
     Route: 048
     Dates: start: 20051014, end: 20060101
  2. THALOMID [Suspect]
     Indication: MULTIPLE MYELOMA
     Dosage: 50 MG, QD (INTERIM PHASE), ORAL ; DOSES VARIED, ORAL
     Route: 048
     Dates: start: 20061009, end: 20070101
  3. DEXAMETHASONE TAB [Suspect]
     Indication: MULTIPLE MYELOMA
     Dosage: 20 MG, 1-4 DAYS / 21 DAYS, ORAL
     Route: 048
     Dates: start: 20061009, end: 20070101
  4. ACYCLOVIR [Concomitant]
  5. LOVENOX [Concomitant]
  6. LEVAQUIN [Concomitant]
  7. MYCELEX [Concomitant]

REACTIONS (3)
  - ACCIDENT [None]
  - INJURY [None]
  - PELVIC FRACTURE [None]
